FAERS Safety Report 4530576-5 (Version None)
Quarter: 2004Q4

REPORT INFORMATION
  Report Type: 
  Country: None (occurrence: None)
  Receive Date: 20041217
  Receipt Date: 20041217
  Transmission Date: 20050328
  Serious: No
  Sender: FDA-Public Use
  Company Number: None

PATIENT
  Sex: Male

DRUGS (1)
  1. RANITIDINE [Suspect]
     Dosage: 150 MG BID

REACTIONS (2)
  - ABDOMINAL PAIN [None]
  - PHARMACEUTICAL PRODUCT COMPLAINT [None]
